FAERS Safety Report 23815721 (Version 2)
Quarter: 2024Q2

REPORT INFORMATION
  Report Type: Spontaneous
  Country: AE (occurrence: None)
  Receive Date: 20240503
  Receipt Date: 20240628
  Transmission Date: 20240716
  Serious: Yes (Other)
  Sender: FDA-Public Use
  Company Number: 2024A101308

PATIENT
  Age: 47 Year
  Sex: Female

DRUGS (1)
  1. OSIMERTINIB [Suspect]
     Active Substance: OSIMERTINIB
     Indication: Lung adenocarcinoma
     Route: 048

REACTIONS (2)
  - Hypereosinophilic syndrome [Unknown]
  - Eosinophilic pneumonia [Unknown]
